FAERS Safety Report 23533946 (Version 1)
Quarter: 2024Q1

REPORT INFORMATION
  Report Type: Spontaneous
  Country: FR (occurrence: FR)
  Receive Date: 20240216
  Receipt Date: 20240216
  Transmission Date: 20240410
  Serious: Yes (Disabling)
  Sender: FDA-Public Use
  Company Number: None

PATIENT
  Age: 73 Year
  Sex: Female
  Weight: 85 kg

DRUGS (1)
  1. LIPTRUZET [Suspect]
     Active Substance: ATORVASTATIN CALCIUM\EZETIMIBE
     Indication: Hypercholesterolaemia
     Dosage: 1 DOSAGE FORM, QD (FILM COATED TABLET)
     Route: 048
     Dates: start: 20231025, end: 20231106

REACTIONS (2)
  - Tendon disorder [Not Recovered/Not Resolved]
  - Tendon rupture [Not Recovered/Not Resolved]

NARRATIVE: CASE EVENT DATE: 20231104
